FAERS Safety Report 14749703 (Version 2)
Quarter: 2018Q2

REPORT INFORMATION
  Report Type: Report from Study
  Country: BR (occurrence: BR)
  Receive Date: 20180412
  Receipt Date: 20180419
  Transmission Date: 20180711
  Serious: Yes (Other)
  Sender: FDA-Public Use
  Company Number: BR-ROCHE-2101287

PATIENT
  Sex: Female
  Weight: 65 kg

DRUGS (3)
  1. TAXOL [Concomitant]
     Active Substance: PACLITAXEL
     Indication: BREAST CANCER
     Route: 065
     Dates: start: 20160601, end: 20170601
  2. PERJETA [Concomitant]
     Active Substance: PERTUZUMAB
     Indication: BREAST CANCER
     Dosage: 840MG INITIAL DOSE / 420MG IN THE SUBSEQUENT DOSES
     Route: 065
     Dates: start: 20160601, end: 20170601
  3. HERCEPTIN [Suspect]
     Active Substance: TRASTUZUMAB
     Indication: BREAST CANCER
     Dosage: 4MG/KG INITIAL DOSE AND 2MG/KG SUBSEQUENT DOSES
     Route: 065
     Dates: start: 20160601, end: 20170601

REACTIONS (2)
  - Drug ineffective [Unknown]
  - Breast cancer recurrent [Unknown]
